FAERS Safety Report 14060601 (Version 1)
Quarter: 2017Q4

REPORT INFORMATION
  Report Type: Report from Study
  Country: None (occurrence: US)
  Receive Date: 20171007
  Receipt Date: 20171007
  Transmission Date: 20180321
  Serious: Yes (Hospitalization, Other)
  Sender: FDA-Public Use
  Company Number: US-ABBVIE-17K-163-2118557-00

PATIENT
  Age: 60 Year
  Sex: Male

DRUGS (1)
  1. HUMIRA [Suspect]
     Active Substance: ADALIMUMAB
     Indication: PSORIATIC ARTHROPATHY
     Route: 058

REACTIONS (7)
  - Pain in extremity [Unknown]
  - Chronic obstructive pulmonary disease [Unknown]
  - Shoulder arthroplasty [Unknown]
  - Pain [Unknown]
  - Knee arthroplasty [Unknown]
  - Psoriatic arthropathy [Unknown]
  - Asthma [Unknown]

NARRATIVE: CASE EVENT DATE: 2007
